FAERS Safety Report 18693301 (Version 1)
Quarter: 2021Q1

REPORT INFORMATION
  Report Type: Spontaneous
  Country: ES (occurrence: ES)
  Receive Date: 20210104
  Receipt Date: 20210104
  Transmission Date: 20210419
  Serious: Yes (Hospitalization, Other)
  Sender: FDA-Public Use
  Company Number: ES-CIPLA LTD.-2020ES09494

PATIENT

DRUGS (5)
  1. TWICOR [Suspect]
     Active Substance: EZETIMIBE\ROSUVASTATIN
     Indication: HYPERCHOLESTEROLAEMIA
     Dosage: UNK, QD (1COMPR/24H)
     Route: 048
     Dates: start: 20200207, end: 20201130
  2. ACIDO ACETILSALICILICO CINFA [Suspect]
     Active Substance: ASPIRIN
     Indication: SYSTEMIC SCLERODERMA
     Dosage: 100 MILLIGRAM, QD (1COMP/24H)
     Route: 048
     Dates: start: 20120201, end: 20201130
  3. ENALAPRIL [Suspect]
     Active Substance: ENALAPRIL
     Indication: HYPERTENSION
     Dosage: 10 MILLIGRAM, BID (10 MG/12H)
     Route: 048
     Dates: start: 20171130, end: 20201130
  4. BOSENTAN. [Suspect]
     Active Substance: BOSENTAN
     Indication: SYSTEMIC SCLERODERMA
     Dosage: 62.5 MILLIGRAM, BID (62.5 MG/12H)
     Route: 048
     Dates: start: 20200206, end: 20201130
  5. ESOMEPRAZOL [ESOMEPRAZOLE] [Suspect]
     Active Substance: ESOMEPRAZOLE
     Indication: OESOPHAGITIS
     Dosage: 40 MILLIGRAM, BID (40 MG/12H)
     Route: 048
     Dates: start: 20161130, end: 20201210

REACTIONS (1)
  - Hepatitis cholestatic [Recovering/Resolving]

NARRATIVE: CASE EVENT DATE: 20201125
